FAERS Safety Report 15763198 (Version 1)
Quarter: 2018Q4

REPORT INFORMATION
  Report Type: Report from Study
  Country: None (occurrence: US)
  Receive Date: 20181226
  Receipt Date: 20181226
  Transmission Date: 20190205
  Serious: Yes (Other)
  Sender: FDA-Public Use
  Company Number: US-ABBVIE-18S-163-2601078-00

PATIENT
  Sex: Female

DRUGS (1)
  1. CREON [Suspect]
     Active Substance: PANCRELIPASE AMYLASE\PANCRELIPASE LIPASE\PANCRELIPASE PROTEASE
     Indication: PRODUCT USED FOR UNKNOWN INDICATION
     Route: 048

REACTIONS (8)
  - Tonsillectomy [Unknown]
  - Colonoscopy [Unknown]
  - Diarrhoea [Unknown]
  - Bunion operation [Unknown]
  - Limb operation [Unknown]
  - Spinal operation [Unknown]
  - Diabetes mellitus [Unknown]
  - Hysterectomy [Unknown]
